FAERS Safety Report 5794648-X (Version None)
Quarter: 2008Q2

REPORT INFORMATION
  Report Type: 
  Country: None (occurrence: None)
  Receive Date: 20080627
  Receipt Date: 20080627
  Transmission Date: 20081010
  Serious: Yes (Hospitalization)
  Sender: FDA-Public Use
  Company Number: None

PATIENT
  Sex: Female
  Weight: 92.5338 kg

DRUGS (11)
  1. COUMADIN [Suspect]
     Indication: ANTICOAGULANT THERAPY
     Dosage: 5 MG PO DAILY  PRIOR TO ADMISSION
     Route: 048
  2. IMDUR [Concomitant]
  3. LASIX [Concomitant]
  4. SPIRONOLACTONE [Concomitant]
  5. SYNTHROID [Concomitant]
  6. HYDRALAZINE HCL [Concomitant]
  7. NEXIUM [Concomitant]
  8. FELODIPINE [Concomitant]
  9. ZOCOR [Concomitant]
  10. TOPROL-XL [Concomitant]
  11. ZETIA [Concomitant]

REACTIONS (6)
  - ASTHENIA [None]
  - DIZZINESS [None]
  - GASTROINTESTINAL HAEMORRHAGE [None]
  - INTERNATIONAL NORMALISED RATIO INCREASED [None]
  - MELAENA [None]
  - PROTHROMBIN TIME PROLONGED [None]
